FAERS Safety Report 26099432 (Version 1)
Quarter: 2025Q4

REPORT INFORMATION
  Report Type: Spontaneous
  Country: US (occurrence: US)
  Receive Date: 20251128
  Receipt Date: 20251128
  Transmission Date: 20260117
  Serious: No
  Sender: KVK-TECH
  Company Number: US-KVK-TECH, INC-20250300047

PATIENT
  Sex: Male

DRUGS (3)
  1. DEXTROAMPHETAMINE SULFATE [Suspect]
     Active Substance: DEXTROAMPHETAMINE SULFATE
     Indication: Attention deficit hyperactivity disorder
     Dosage: UNK UNK, UNKNOWN
     Route: 065
     Dates: start: 20220711
  2. DEXTROAMPHETAMINE SULFATE [Suspect]
     Active Substance: DEXTROAMPHETAMINE SULFATE
     Dosage: UNK UNK, UNKNOWN
     Route: 065
  3. DEXTROAMPHETAMINE SULFATE [Suspect]
     Active Substance: DEXTROAMPHETAMINE SULFATE
     Dosage: UNK UNK, UNKNOWN
     Route: 065
     Dates: start: 2025

REACTIONS (5)
  - Condition aggravated [Unknown]
  - Therapeutic product effect prolonged [Unknown]
  - Expired product administered [Unknown]
  - Decreased appetite [Unknown]
  - Drug ineffective [Unknown]
